FAERS Safety Report 14949209 (Version 1)
Quarter: 2018Q2

REPORT INFORMATION
  Report Type: Spontaneous
  Country: US (occurrence: US)
  Receive Date: 20180508
  Receipt Date: 20180508
  Transmission Date: 20180711
  Serious: Yes (Other)
  Sender: FDA-Public Use
  Company Number: None

PATIENT
  Age: 69 Year
  Sex: Female
  Weight: 63.5 kg

DRUGS (4)
  1. ROPINIROLE. [Concomitant]
     Active Substance: ROPINIROLE
  2. LORAZEPAM. [Concomitant]
     Active Substance: LORAZEPAM
  3. CAEB/LEVO TAB 25-100MG [Suspect]
     Active Substance: CARBIDOPA\LEVODOPA
     Indication: PARKINSON^S DISEASE
     Route: 048
     Dates: start: 20180426
  4. DYAZIDE [Concomitant]
     Active Substance: HYDROCHLOROTHIAZIDE\TRIAMTERENE

REACTIONS (18)
  - Dystonia [None]
  - Fear of death [None]
  - Balance disorder [None]
  - Neuralgia [None]
  - Chest discomfort [None]
  - Tremor [None]
  - Hypoaesthesia [None]
  - Vertigo [None]
  - Head discomfort [None]
  - Headache [None]
  - Dizziness [None]
  - Tinnitus [None]
  - Pain [None]
  - Dyspnoea [None]
  - Throat tightness [None]
  - Feeling abnormal [None]
  - Dysphagia [None]
  - Anxiety [None]

NARRATIVE: CASE EVENT DATE: 20180426
